FAERS Safety Report 9956456 (Version 1)
Quarter: 2014Q1

REPORT INFORMATION
  Report Type: Report from Study
  Country: US (occurrence: US)
  Receive Date: 20140304
  Receipt Date: 20140304
  Transmission Date: 20141002
  Serious: No
  Sender: FDA-Public Use
  Company Number: US-ABBVIE-13P-163-1100270-00

PATIENT
  Age: 31 Year
  Sex: Female

DRUGS (5)
  1. HUMIRA [Suspect]
     Indication: CROHN^S DISEASE
     Dates: start: 20130416
  2. ZOLOFT [Concomitant]
     Indication: DEPRESSION
  3. ZOLOFT [Concomitant]
     Indication: ANXIETY
  4. ZOLOFT [Concomitant]
     Indication: DECREASED APPETITE
  5. LIPITOL [Concomitant]
     Indication: HYPERTENSION

REACTIONS (2)
  - Pyrexia [Not Recovered/Not Resolved]
  - Headache [Not Recovered/Not Resolved]
